FAERS Safety Report 8403350-7 (Version None)
Quarter: 2012Q2

REPORT INFORMATION
  Report Type: 
  Country: None (occurrence: None)
  Receive Date: 20120529
  Receipt Date: 20120514
  Transmission Date: 20120825
  Serious: Yes (Other)
  Sender: FDA-Public Use
  Company Number: DK-GDP-12413465

PATIENT
  Sex: Female

DRUGS (1)
  1. ORACEA [Suspect]
     Indication: RASH
     Dosage: (ORAL)
     Route: 048

REACTIONS (7)
  - BACK PAIN [None]
  - MIGRAINE [None]
  - OBSESSIVE THOUGHTS [None]
  - ANXIETY [None]
  - NECK PAIN [None]
  - MUSCULOSKELETAL STIFFNESS [None]
  - SUICIDAL IDEATION [None]
